FAERS Safety Report 5569423-1 (Version None)
Quarter: 2007Q4

REPORT INFORMATION
  Report Type: 
  Country: None (occurrence: None)
  Receive Date: 20071220
  Receipt Date: 20070827
  Transmission Date: 20080405
  Serious: No
  Sender: FDA-Public Use
  Company Number: US-ABBOTT-07P-163-0415505-00

PATIENT
  Age: 33 Year
  Sex: Female

DRUGS (3)
  1. DILAUDID [Suspect]
     Indication: PAIN
     Route: 042
     Dates: start: 20070801, end: 20070801
  2. DILAUDID [Suspect]
     Indication: URINARY TRACT INFECTION
  3. FLUOXETINE HYDROCHLORIDE [Concomitant]
     Indication: DRUG USE FOR UNKNOWN INDICATION
     Route: 048

REACTIONS (1)
  - HEADACHE [None]
